FAERS Safety Report 10714981 (Version 1)
Quarter: 2015Q1

REPORT INFORMATION
  Report Type: Spontaneous
  Country: BE (occurrence: BE)
  Receive Date: 20150115
  Receipt Date: 20150115
  Transmission Date: 20150721
  Serious: Yes (Other)
  Sender: FDA-Public Use
  Company Number: BE-ASTRAZENECA-2015SE02638

PATIENT
  Age: 25312 Day
  Sex: Male
  Weight: 70 kg

DRUGS (4)
  1. BRILIQUE [Suspect]
     Active Substance: TICAGRELOR
     Route: 048
     Dates: start: 201410
  2. LIPITOR [Concomitant]
     Active Substance: ATORVASTATIN CALCIUM
  3. EMCONCOR [Concomitant]
     Active Substance: BISOPROLOL FUMARATE
  4. ASAFLOW [Concomitant]
     Active Substance: ASPIRIN

REACTIONS (1)
  - Hepatitis [Recovered/Resolved]

NARRATIVE: CASE EVENT DATE: 20141230
